FAERS Safety Report 9243342 (Version 1)
Quarter: 2013Q2

REPORT INFORMATION
  Report Type: Spontaneous
  Country: JP (occurrence: JP)
  Receive Date: 20130420
  Receipt Date: 20130420
  Transmission Date: 20140414
  Serious: Yes (Hospitalization, Other)
  Sender: FDA-Public Use
  Company Number: JP-B.I. PHARMACEUTICALS,INC./RIDGEFIELD-2013-BI-05195NB

PATIENT
  Age: 88 Year
  Sex: Female
  Weight: 44 kg

DRUGS (9)
  1. PRADAXA [Suspect]
     Indication: ATRIAL FIBRILLATION
     Dosage: 220 MG
     Route: 048
     Dates: end: 20130222
  2. DIOVAN [Concomitant]
     Indication: HYPERTENSION
     Dosage: 80 MG
     Route: 048
  3. AMLODIN [Concomitant]
     Indication: HYPERTENSION
     Dosage: 2.5 MCG
     Route: 048
  4. GASCON [Concomitant]
     Indication: CONSTIPATION
     Dosage: 120 G
     Route: 048
  5. CIBENOL [Concomitant]
     Indication: ATRIAL FIBRILLATION
     Dosage: 150 MG
     Route: 048
  6. BIOFERMIN [Concomitant]
     Indication: CONSTIPATION
     Dosage: 3 G
     Route: 048
  7. ALDACTONE A [Concomitant]
     Indication: HYPERTENSION
     Dosage: 50 MG
     Route: 048
  8. SIGMART [Concomitant]
     Indication: CONSTIPATION
     Dosage: 990 MG
     Route: 048
  9. ARICEPT [Concomitant]
     Indication: DEMENTIA
     Dosage: 5 G
     Route: 048
     Dates: end: 20130220

REACTIONS (3)
  - Muscle haemorrhage [Not Recovered/Not Resolved]
  - Activated partial thromboplastin time prolonged [Not Recovered/Not Resolved]
  - Decreased appetite [Not Recovered/Not Resolved]
